FAERS Safety Report 23601023 (Version 1)
Quarter: 2024Q1

REPORT INFORMATION
  Report Type: Spontaneous
  Country: US (occurrence: US)
  Receive Date: 20240306
  Receipt Date: 20240306
  Transmission Date: 20240410
  Serious: Yes (Other)
  Sender: FDA-Public Use
  Company Number: US-TEVA-VS-3137432

PATIENT
  Age: 19 Year
  Sex: Male

DRUGS (4)
  1. UZEDY [Suspect]
     Active Substance: RISPERIDONE
     Indication: Product used for unknown indication
     Route: 065
     Dates: start: 202211
  2. COGENTIN [Concomitant]
     Active Substance: BENZTROPINE MESYLATE
  3. RISPERIDONE [Concomitant]
     Active Substance: RISPERIDONE
     Route: 048
  4. RISPERIDONE [Concomitant]
     Active Substance: RISPERIDONE
     Dosage: TIME INTERVAL: 0.14285714 WEEKS: 2 MG X 7 DAYS
     Route: 048

REACTIONS (2)
  - Oculogyric crisis [Unknown]
  - Trismus [Unknown]
